FAERS Safety Report 23384151 (Version 1)
Quarter: 2024Q1

REPORT INFORMATION
  Report Type: Spontaneous
  Country: ES (occurrence: ES)
  Receive Date: 20240109
  Receipt Date: 20240109
  Transmission Date: 20240410
  Serious: Yes (Other)
  Sender: FDA-Public Use
  Company Number: None

PATIENT
  Age: 22 Year
  Sex: Male

DRUGS (1)
  1. RINVOQ [Suspect]
     Active Substance: UPADACITINIB
     Indication: Dermatitis atopic
     Route: 048
     Dates: start: 20230427

REACTIONS (4)
  - Dizziness [Unknown]
  - Fungal skin infection [Recovering/Resolving]
  - Anxiety disorder [Recovering/Resolving]
  - Sleep paralysis [Recovering/Resolving]

NARRATIVE: CASE EVENT DATE: 20230501
